FAERS Safety Report 6089035-3 (Version None)
Quarter: 2009Q1

REPORT INFORMATION
  Report Type: 
  Country: None (occurrence: None)
  Receive Date: 20090224
  Receipt Date: 20090223
  Transmission Date: 20090719
  Serious: Yes (Hospitalization, Congenital Anomaly, Other)
  Sender: FDA-Public Use
  Company Number: A0769801A

PATIENT

DRUGS (7)
  1. ARIXTRA [Suspect]
     Indication: DEEP VEIN THROMBOSIS
     Dosage: 7.5MG PER DAY
     Dates: start: 20090211
  2. ASPIRIN [Concomitant]
  3. FOLIC ACID [Concomitant]
  4. LABETALOL HCL [Concomitant]
  5. PREDNISONE TAB [Concomitant]
  6. PRENATAL NUTRIENTS [Concomitant]
  7. LOVENOX [Concomitant]

REACTIONS (3)
  - DRUG EXPOSURE DURING PREGNANCY [None]
  - INTRA-UTERINE DEATH [None]
  - MULTIPLE CONGENITAL ABNORMALITIES [None]
